FAERS Safety Report 13620011 (Version 2)
Quarter: 2017Q2

REPORT INFORMATION
  Report Type: Spontaneous
  Country: US (occurrence: US)
  Receive Date: 20170607
  Receipt Date: 20170608
  Transmission Date: 20170830
  Serious: Yes (Life-Threatening, Hospitalization, Other)
  Sender: FDA-Public Use
  Company Number: PHHY2017US077894

PATIENT
  Age: 60 Year
  Sex: Male

DRUGS (1)
  1. SIMVASTATIN. [Suspect]
     Active Substance: SIMVASTATIN
     Indication: CORONARY ARTERY DISEASE
     Dosage: 80 MG, QD
     Route: 065

REACTIONS (2)
  - Rhabdomyolysis [Unknown]
  - Hypercalcaemia [Recovered/Resolved]
